FAERS Safety Report 7161767-5 (Version None)
Quarter: 2010Q4

REPORT INFORMATION
  Report Type: 
  Country: None (occurrence: None)
  Receive Date: 20101215
  Receipt Date: 20101202
  Transmission Date: 20110411
  Serious: Yes (Hospitalization, Other)
  Sender: FDA-Public Use
  Company Number: PHHY2010DE82064

PATIENT
  Age: 72 Year
  Sex: Female

DRUGS (2)
  1. METOPROLOL [Suspect]
     Indication: HYPERTENSION
  2. RAMIPRIL [Suspect]
     Indication: CARDIAC FAILURE CHRONIC

REACTIONS (14)
  - ABDOMINAL PAIN UPPER [None]
  - CHOLECYSTECTOMY [None]
  - CHOLECYSTITIS CHRONIC [None]
  - CHOLECYSTITIS INFECTIVE [None]
  - CHOLELITHIASIS [None]
  - DUODENAL FISTULA [None]
  - DUODENAL ULCER PERFORATION [None]
  - GALLSTONE ILEUS [None]
  - GAMMA-GLUTAMYLTRANSFERASE INCREASED [None]
  - LAPAROTOMY [None]
  - NAUSEA [None]
  - OBSTRUCTION GASTRIC [None]
  - PNEUMOBILIA [None]
  - VOMITING [None]
